FAERS Safety Report 23719914 (Version 1)
Quarter: 2024Q2

REPORT INFORMATION
  Report Type: Spontaneous
  Country: US (occurrence: US)
  Receive Date: 20240408
  Receipt Date: 20240408
  Transmission Date: 20240716
  Serious: Yes (Death, Life-Threatening, Other)
  Sender: FDA-Public Use
  Company Number: US-AMGEN-USASP2024066548

PATIENT
  Age: 68 Year
  Sex: Female

DRUGS (14)
  1. INFLIXIMAB [Suspect]
     Active Substance: INFLIXIMAB
     Indication: Myocarditis
     Dosage: UNK
     Route: 065
  2. INFLIXIMAB [Suspect]
     Active Substance: INFLIXIMAB
     Indication: Necrosis
  3. INFLIXIMAB [Suspect]
     Active Substance: INFLIXIMAB
     Indication: Atrioventricular block complete
  4. IPILIMUMAB [Concomitant]
     Active Substance: IPILIMUMAB
     Indication: Myocarditis
     Dosage: UNK
     Route: 065
  5. IPILIMUMAB [Concomitant]
     Active Substance: IPILIMUMAB
     Indication: Atrioventricular block complete
  6. NIVOLUMAB [Concomitant]
     Active Substance: NIVOLUMAB
     Indication: Myocarditis
     Dosage: UNK
     Route: 065
  7. NIVOLUMAB [Concomitant]
     Active Substance: NIVOLUMAB
     Indication: Atrioventricular block complete
  8. DOPAMINE [Concomitant]
     Active Substance: DOPAMINE HYDROCHLORIDE
     Dosage: UNK
     Route: 065
  9. METHYLPREDNISOLONE [Concomitant]
     Active Substance: METHYLPREDNISOLONE
     Indication: Myocarditis
     Dosage: UNK
     Route: 065
  10. METHYLPREDNISOLONE [Concomitant]
     Active Substance: METHYLPREDNISOLONE
     Indication: Necrosis
  11. METHYLPREDNISOLONE [Concomitant]
     Active Substance: METHYLPREDNISOLONE
     Indication: Atrioventricular block complete
  12. MYCOPHENOLATE MOFETIL [Concomitant]
     Active Substance: MYCOPHENOLATE MOFETIL
     Indication: Myocarditis
     Dosage: UNK
     Route: 065
  13. MYCOPHENOLATE MOFETIL [Concomitant]
     Active Substance: MYCOPHENOLATE MOFETIL
     Indication: Necrosis
  14. MYCOPHENOLATE MOFETIL [Concomitant]
     Active Substance: MYCOPHENOLATE MOFETIL
     Indication: Atrioventricular block complete

REACTIONS (7)
  - Cardiac arrest [Fatal]
  - Acute respiratory failure [Unknown]
  - Pulmonary oedema [Unknown]
  - Atrioventricular block complete [Unknown]
  - Myocarditis [Unknown]
  - Drug ineffective for unapproved indication [Unknown]
  - Off label use [Unknown]
